FAERS Safety Report 18883719 (Version 1)
Quarter: 2021Q1

REPORT INFORMATION
  Report Type: Spontaneous
  Country: JP (occurrence: JP)
  Receive Date: 20210211
  Receipt Date: 20210211
  Transmission Date: 20210420
  Serious: Yes (Hospitalization)
  Sender: FDA-Public Use
  Company Number: JP-CUMBERLAND-2021-JP-000001

PATIENT
  Age: 68 Year
  Sex: Male

DRUGS (3)
  1. PREDNISOLONE. [Suspect]
     Active Substance: PREDNISOLONE
  2. TACROLIMUS. [Suspect]
     Active Substance: TACROLIMUS
  3. REDITREX [Suspect]
     Active Substance: METHOTREXATE

REACTIONS (3)
  - Lymphoproliferative disorder [Recovered/Resolved]
  - Thrombocytopenia [Recovered/Resolved]
  - Epstein-Barr virus antibody positive [Recovered/Resolved]
